FAERS Safety Report 12573857 (Version 2)
Quarter: 2016Q3

REPORT INFORMATION
  Report Type: Spontaneous
  Country: JP (occurrence: JP)
  Receive Date: 20160720
  Receipt Date: 20160804
  Transmission Date: 20161109
  Serious: Yes (Other)
  Sender: FDA-Public Use
  Company Number: JP-PFIZER INC-2016338871

PATIENT
  Age: 47 Year
  Sex: Male

DRUGS (1)
  1. XALATAN [Suspect]
     Active Substance: LATANOPROST
     Indication: GLAUCOMA
     Dosage: UNK ONCE DAILY
     Route: 047
     Dates: start: 200407, end: 200608

REACTIONS (2)
  - Disease progression [Unknown]
  - Keratoconus [Unknown]

NARRATIVE: CASE EVENT DATE: 200608
